FAERS Safety Report 17353819 (Version 2)
Quarter: 2020Q3

REPORT INFORMATION
  Report Type: Spontaneous
  Country: US (occurrence: US)
  Receive Date: 20200131
  Receipt Date: 20200915
  Transmission Date: 20201102
  Serious: Yes (Other)
  Sender: FDA-Public Use
  Company Number: US-GILEAD-2020-0448735

PATIENT
  Age: 47 Year
  Sex: Female
  Weight: 148.75 kg

DRUGS (53)
  1. FIORICET [Concomitant]
     Active Substance: ACETAMINOPHEN\BUTALBITAL\CAFFEINE
  2. MULTIVITAMINS [VITAMINS NOS] [Concomitant]
     Active Substance: VITAMINS
  3. CLINDAMYCIN. [Concomitant]
     Active Substance: CLINDAMYCIN
  4. CYANOCOBALAMIN. [Concomitant]
     Active Substance: CYANOCOBALAMIN
  5. FLEXERIL [CEFIXIME] [Concomitant]
     Active Substance: CEFIXIME
  6. LORAZEPAM. [Concomitant]
     Active Substance: LORAZEPAM
  7. HYOSCYAMINE. [Concomitant]
     Active Substance: HYOSCYAMINE
  8. KLOR?CON [Concomitant]
     Active Substance: POTASSIUM CHLORIDE
  9. VENTOLIN HFA [Concomitant]
     Active Substance: ALBUTEROL SULFATE
  10. DOCUSATE [Concomitant]
     Active Substance: DOCUSATE
  11. ALDACTONE [Concomitant]
     Active Substance: SPIRONOLACTONE
  12. GLUCOPHAGE [Concomitant]
     Active Substance: METFORMIN HYDROCHLORIDE
  13. LIDODERM [Concomitant]
     Active Substance: LIDOCAINE
  14. SEROQUEL XR [Concomitant]
     Active Substance: QUETIAPINE FUMARATE
  15. BUMEX [Concomitant]
     Active Substance: BUMETANIDE
  16. CARVEDILOL. [Concomitant]
     Active Substance: CARVEDILOL
  17. LASIX [Concomitant]
     Active Substance: FUROSEMIDE
  18. ZOFRAN [Concomitant]
     Active Substance: ONDANSETRON HYDROCHLORIDE
  19. THIAMINE. [Concomitant]
     Active Substance: THIAMINE
  20. ATRIPLA [Suspect]
     Active Substance: EFAVIRENZ\EMTRICITABINE\TENOFOVIR DISOPROXIL FUMARATE
     Indication: HIV INFECTION
     Dosage: UNK
     Route: 048
     Dates: start: 2017
  21. ASPIRIN 81 [Concomitant]
     Active Substance: ASPIRIN
  22. VALIUM [Concomitant]
     Active Substance: DIAZEPAM
  23. ZAROXOLYN [Concomitant]
     Active Substance: METOLAZONE
  24. VITAMIN B COMPLEX [Concomitant]
     Active Substance: CYANOCOBALAMIN\DEXPANTHENOL\NIACINAMIDE\PYRIDOXINE HYDROCHLORIDE\RIBOFLAVIN 5^-PHOSPHATE SODIUM\THIAMINE HYDROCHLORIDE\VITAMIN B COMPLEX
  25. ATIVAN [Concomitant]
     Active Substance: LORAZEPAM
  26. IRON [Concomitant]
     Active Substance: IRON
  27. NEURONTIN [Concomitant]
     Active Substance: GABAPENTIN
  28. TRAZODONE [Concomitant]
     Active Substance: TRAZODONE HYDROCHLORIDE
  29. PROTONIX [Concomitant]
     Active Substance: PANTOPRAZOLE SODIUM
  30. KEPPRA [Concomitant]
     Active Substance: LEVETIRACETAM
  31. NAPROSYN E [Concomitant]
     Active Substance: NAPROXEN
  32. FLONASE [Concomitant]
     Active Substance: FLUTICASONE PROPIONATE
  33. COREG [Concomitant]
     Active Substance: CARVEDILOL
  34. ANTIVERT [DIHYDROERGOCRISTINE;LOMIFYLLINE] [Concomitant]
     Active Substance: DIHYDROERGOCRISTINE\LOMIFYLLINE
  35. POTASSIUM [Concomitant]
     Active Substance: POTASSIUM
  36. ZYRTEC [Concomitant]
     Active Substance: CETIRIZINE HYDROCHLORIDE
  37. ACETAMINOPHEN. [Concomitant]
     Active Substance: ACETAMINOPHEN
  38. NITROGLYCERIN. [Concomitant]
     Active Substance: NITROGLYCERIN
  39. CYMBALTA [Concomitant]
     Active Substance: DULOXETINE HYDROCHLORIDE
  40. LIPITOR [Concomitant]
     Active Substance: ATORVASTATIN CALCIUM
  41. DILANTIN [Concomitant]
     Active Substance: PHENYTOIN
  42. ULTRAMED [TRAMADOL HYDROCHLORIDE] [Concomitant]
     Active Substance: TRAMADOL HYDROCHLORIDE
  43. LEVOFLOXACIN. [Concomitant]
     Active Substance: LEVOFLOXACIN
  44. SYNTHROID [Concomitant]
     Active Substance: LEVOTHYROXINE SODIUM
  45. TRADJENTA [Concomitant]
     Active Substance: LINAGLIPTIN
  46. MEDROL [Concomitant]
     Active Substance: METHYLPREDNISOLONE
  47. ZYLOPRIM [Concomitant]
     Active Substance: ALLOPURINOL
  48. SPIRONOLACTONE. [Concomitant]
     Active Substance: SPIRONOLACTONE
  49. METOLAZONE. [Concomitant]
     Active Substance: METOLAZONE
  50. TRUVADA [Suspect]
     Active Substance: EMTRICITABINE\TENOFOVIR DISOPROXIL FUMARATE
     Indication: HIV INFECTION
     Dosage: UNK
     Route: 048
     Dates: start: 201805, end: 2019
  51. HYDROCODONE [Concomitant]
     Active Substance: HYDROCODONE
  52. VITAMIN E [DL?ALPHA TOCOPHERYL ACETATE] [Concomitant]
  53. LISINOPRIL. [Concomitant]
     Active Substance: LISINOPRIL

REACTIONS (6)
  - Emotional distress [Not Recovered/Not Resolved]
  - Anxiety [Not Recovered/Not Resolved]
  - Anhedonia [Not Recovered/Not Resolved]
  - Economic problem [Not Recovered/Not Resolved]
  - Pain [Not Recovered/Not Resolved]
  - Chronic kidney disease [Not Recovered/Not Resolved]

NARRATIVE: CASE EVENT DATE: 20181024
